FAERS Safety Report 6067858-4 (Version None)
Quarter: 2009Q1

REPORT INFORMATION
  Report Type: 
  Country: None (occurrence: None)
  Receive Date: 20090203
  Receipt Date: 20090127
  Transmission Date: 20090719
  Serious: Yes (Death)
  Sender: FDA-Public Use
  Company Number: 2009-190297-NL

PATIENT
  Age: 51 Year
  Sex: Male

DRUGS (6)
  1. MIRTAZAPINE [Suspect]
     Dosage: ORAL
     Route: 048
  2. HYDROCODONE BITARTRATE [Suspect]
     Dosage: ORAL
     Route: 048
  3. TRAMADOL HCL [Suspect]
     Dosage: ORAL
     Route: 048
  4. ZOLPIDEM [Suspect]
     Dosage: ORAL
     Route: 048
  5. LISINOPRIL [Suspect]
     Dosage: ORAL
     Route: 048
  6. MEPROBAMATE [Suspect]
     Dosage: ORAL
     Route: 048

REACTIONS (2)
  - CARDIAC ARREST [None]
  - RESPIRATORY ARREST [None]
